FAERS Safety Report 22823266 (Version 9)
Quarter: 2024Q2

REPORT INFORMATION
  Report Type: Spontaneous
  Country: US (occurrence: US)
  Receive Date: 20230815
  Receipt Date: 20240624
  Transmission Date: 20240716
  Serious: Yes (Other)
  Sender: FDA-Public Use
  Company Number: US-BRISTOL-MYERS SQUIBB COMPANY-2023-114031

PATIENT
  Age: 83 Year
  Sex: Female
  Weight: 63.05 kg

DRUGS (21)
  1. POMALYST [Suspect]
     Active Substance: POMALIDOMIDE
     Indication: Plasma cell myeloma
     Dosage: DAILY 1-7 , EVERY 28 DAY CYCLE
     Route: 048
     Dates: start: 20220102
  2. POMALYST [Suspect]
     Active Substance: POMALIDOMIDE
     Dosage: ONE CAPSULE DAILY FOR SEVEN DAYS ON,  THEN SEVEN DAYS OFF, THEN REPEAT EVERY 28-DAY CYCLE
     Route: 048
     Dates: start: 20220122
  3. POMALYST [Suspect]
     Active Substance: POMALIDOMIDE
     Dosage: DAILY 1-7 , EVERY 28 DAY CYCLE
     Route: 048
     Dates: start: 20220122
  4. POMALYST [Suspect]
     Active Substance: POMALIDOMIDE
     Dosage: ONE CAPSULE DAILY FOR SEVEN DAYS ON,  THEN SEVEN DAYS OFF, THEN REPEAT EVERY 28-DAY CYCLE
     Route: 048
     Dates: start: 20220122
  5. POMALYST [Suspect]
     Active Substance: POMALIDOMIDE
     Dosage: ONE CAPSULE DAILY FOR SEVEN DAYS ON,  THEN SEVEN DAYS OFF, THEN REPEAT EVERY 28-DAY CYCLE
     Route: 048
     Dates: start: 20220122
  6. POMALYST [Suspect]
     Active Substance: POMALIDOMIDE
     Dosage: DAILY 1-7 THEN 21 DAYS OFF, EVERY 28 DAY CYCLE
     Route: 048
     Dates: start: 20240209
  7. DARZALEX [Concomitant]
     Active Substance: DARATUMUMAB
     Indication: Product used for unknown indication
     Route: 042
  8. VITAMINS NOS [Concomitant]
     Active Substance: VITAMINS
     Indication: Product used for unknown indication
  9. ONDANSETRON HYDROCHLORIDE [Concomitant]
     Active Substance: ONDANSETRON HYDROCHLORIDE
     Indication: Product used for unknown indication
  10. TEMAZEPAM [Concomitant]
     Active Substance: TEMAZEPAM
     Indication: Product used for unknown indication
  11. GABAPENTIN [Concomitant]
     Active Substance: GABAPENTIN
     Indication: Product used for unknown indication
  12. VITAMIN D3 [Concomitant]
     Active Substance: CHOLECALCIFEROL
     Indication: Product used for unknown indication
     Dosage: MAXIMUM STRENGTH
  13. AMLODIPINE BESYLATE [Concomitant]
     Active Substance: AMLODIPINE BESYLATE
     Indication: Product used for unknown indication
  14. ASPIRIN [Concomitant]
     Active Substance: ASPIRIN
     Indication: Product used for unknown indication
     Dosage: 81
  15. ASPIRIN [Concomitant]
     Active Substance: ASPIRIN
     Dosage: DELAYED RELEASE
     Route: 048
  16. VITAMIN C [Concomitant]
     Active Substance: ASCORBIC ACID
     Indication: Product used for unknown indication
     Route: 048
  17. VITAMIN C [Concomitant]
     Active Substance: ASCORBIC ACID
  18. ZINC [Concomitant]
     Active Substance: PYRITHIONE ZINC\ZINC\ZINC CHLORIDE
     Indication: Product used for unknown indication
     Dosage: 15
  19. TYLENOL EXTRA STRENGTH [Concomitant]
     Active Substance: ACETAMINOPHEN
     Indication: Product used for unknown indication
  20. GABAPENTIN [Concomitant]
     Active Substance: GABAPENTIN
     Indication: Product used for unknown indication
     Route: 048
  21. ACYCLOVIR [Concomitant]
     Active Substance: ACYCLOVIR
     Indication: Product used for unknown indication
     Route: 048

REACTIONS (14)
  - Neutropenia [Recovering/Resolving]
  - Neuropathy peripheral [Not Recovered/Not Resolved]
  - Bone pain [Unknown]
  - Laboratory test abnormal [Not Recovered/Not Resolved]
  - Muscular weakness [Recovered/Resolved with Sequelae]
  - Fatigue [Not Recovered/Not Resolved]
  - COVID-19 [Recovering/Resolving]
  - White blood cell count decreased [Not Recovered/Not Resolved]
  - Platelet count decreased [Recovering/Resolving]
  - Neutrophil count decreased [Not Recovered/Not Resolved]
  - Off label use [Unknown]
  - Red blood cell count decreased [Not Recovered/Not Resolved]
  - Asthenia [Not Recovered/Not Resolved]
  - Drug intolerance [Unknown]

NARRATIVE: CASE EVENT DATE: 20170101
